FAERS Safety Report 25874175 (Version 1)
Quarter: 2025Q4

REPORT INFORMATION
  Report Type: Spontaneous
  Country: US (occurrence: US)
  Receive Date: 20251002
  Receipt Date: 20251002
  Transmission Date: 20260118
  Serious: Yes (Hospitalization)
  Sender: PFIZER
  Company Number: US-PFIZER INC-202500194914

PATIENT
  Age: 85 Year
  Sex: Male
  Weight: 63.5 kg

DRUGS (1)
  1. VYNDAMAX [Suspect]
     Active Substance: TAFAMIDIS
     Dosage: 61 MG, DAILY
     Route: 048
     Dates: end: 202508

REACTIONS (2)
  - Fall [Recovering/Resolving]
  - Rib fracture [Recovering/Resolving]
